FAERS Safety Report 13166764 (Version 2)
Quarter: 2018Q2

REPORT INFORMATION
  Report Type: Spontaneous
  Country: DE (occurrence: DE)
  Receive Date: 20170131
  Receipt Date: 20180401
  Transmission Date: 20180711
  Serious: Yes (Hospitalization, Other)
  Sender: FDA-Public Use
  Company Number: GXKR2016DE005179

PATIENT
  Age: 73 Year
  Sex: Male
  Weight: 80 kg

DRUGS (4)
  1. IBU [Suspect]
     Active Substance: IBUPROFEN
     Indication: PROCEDURAL PAIN
     Dosage: 600 MG, QID
     Route: 048
     Dates: start: 20160930
  2. IBU [Suspect]
     Active Substance: IBUPROFEN
     Dosage: 600 MG, QID
     Route: 048
     Dates: start: 20161029
  3. PARACETAMOL COMP. (ACETAMINOPHEN\CODEINE PHOSPHATE) [Suspect]
     Active Substance: ACETAMINOPHEN\CODEINE PHOSPHATE
     Dosage: 1 DF, 6QD
     Route: 048
     Dates: start: 20161029
  4. PARACETAMOL COMP. (ACETAMINOPHEN\CODEINE PHOSPHATE) [Suspect]
     Active Substance: ACETAMINOPHEN\CODEINE PHOSPHATE
     Indication: PROCEDURAL PAIN
     Dosage: 1 DF, 6QD
     Route: 048
     Dates: start: 20160930

REACTIONS (3)
  - Visual impairment [Recovering/Resolving]
  - Photophobia [Unknown]
  - Optic ischaemic neuropathy [Not Recovered/Not Resolved]

NARRATIVE: CASE EVENT DATE: 20161015
